FAERS Safety Report 19520633 (Version 1)
Quarter: 2021Q3

REPORT INFORMATION
  Report Type: Spontaneous
  Country: US (occurrence: US)
  Receive Date: 20210712
  Receipt Date: 20210712
  Transmission Date: 20211014
  Serious: Yes (Other)
  Sender: FDA-Public Use
  Company Number: US-MYLANLABS-2021M1041009

PATIENT
  Age: 59 Year
  Sex: Female

DRUGS (4)
  1. DOXORUBICIN [Concomitant]
     Active Substance: DOXORUBICIN
     Indication: OVARIAN CANCER STAGE III
     Dosage: UNK UNK, CYCLE
     Route: 065
  2. OLAPARIB. [Suspect]
     Active Substance: OLAPARIB
     Indication: OVARIAN CANCER STAGE III
     Dosage: UNK UNK, CYCLE
     Route: 065
     Dates: start: 202003
  3. PACLITAXEL. [Concomitant]
     Active Substance: PACLITAXEL
     Indication: OVARIAN CANCER STAGE III
     Dosage: UNK UNK, CYCLE
     Route: 065
  4. CARBOPLATIN. [Suspect]
     Active Substance: CARBOPLATIN
     Indication: OVARIAN CANCER STAGE III
     Dosage: UNK, CYCLICAL
     Route: 065

REACTIONS (1)
  - Renal failure [Not Recovered/Not Resolved]
